FAERS Safety Report 24404999 (Version 1)
Quarter: 2024Q4

REPORT INFORMATION
  Report Type: Spontaneous
  Country: US (occurrence: None)
  Receive Date: 20241005
  Receipt Date: 20241005
  Transmission Date: 20250115
  Serious: Yes (Hospitalization)
  Sender: Public
  Company Number: None

PATIENT
  Age: 68 Year
  Sex: Male
  Weight: 75.8 kg

DRUGS (4)
  1. FLUOROURACIL [Suspect]
     Active Substance: FLUOROURACIL
     Dates: end: 20240911
  2. LEUCOVORIN CALCIUM [Suspect]
     Active Substance: LEUCOVORIN CALCIUM
     Dates: end: 20240909
  3. NIVOLUMAB [Suspect]
     Active Substance: NIVOLUMAB
     Dates: end: 20240909
  4. ELOXATIN [Suspect]
     Active Substance: OXALIPLATIN
     Dates: end: 20240909

REACTIONS (6)
  - Dihydropyrimidine dehydrogenase deficiency [None]
  - Toxicity to various agents [None]
  - Genital discolouration [None]
  - Colitis [None]
  - Oral candidiasis [None]
  - Hypophagia [None]

NARRATIVE: CASE EVENT DATE: 20240919
